FAERS Safety Report 6320157-5 (Version None)
Quarter: 2009Q3

REPORT INFORMATION
  Report Type: 
  Country: None (occurrence: None)
  Receive Date: 20090822
  Receipt Date: 20081021
  Transmission Date: 20100115
  Serious: No
  Sender: FDA-Public Use
  Company Number: US-ABBOTT-08P-163-0483107-00

PATIENT
  Sex: Female
  Weight: 74.91 kg

DRUGS (8)
  1. NIASPAN [Suspect]
     Indication: BLOOD CHOLESTEROL INCREASED
     Route: 048
     Dates: start: 20081002
  2. LEVOTHYROXINE [Concomitant]
     Indication: HYPOTHYROIDISM
     Route: 048
  3. METOPROLOL [Concomitant]
     Indication: CARDIAC DISORDER
     Route: 048
  4. METOPROLOL [Concomitant]
     Indication: BLOOD PRESSURE
  5. DILTIAZEM [Concomitant]
     Indication: CARDIAC DISORDER
     Route: 048
  6. DILTIAZEM [Concomitant]
     Indication: BLOOD PRESSURE
  7. FLUOXETINE [Concomitant]
     Indication: STRESS
     Route: 048
     Dates: start: 19960101
  8. SIMVASTATIN [Concomitant]
     Indication: BLOOD CHOLESTEROL
     Route: 048

REACTIONS (3)
  - ERYTHEMA [None]
  - HEART RATE INCREASED [None]
  - PRURITUS [None]
